FAERS Safety Report 9337793 (Version 1)
Quarter: 2013Q2

REPORT INFORMATION
  Report Type: Spontaneous
  Country: US (occurrence: US)
  Receive Date: 20130607
  Receipt Date: 20130607
  Transmission Date: 20140414
  Serious: Yes (Hospitalization)
  Sender: FDA-Public Use
  Company Number: US-ASTRAZENECA-2013SE38413

PATIENT
  Age: 44 Year
  Sex: Male

DRUGS (6)
  1. QUETIAPINE [Suspect]
     Indication: SCHIZOAFFECTIVE DISORDER
     Route: 048
  2. LISINOPRIL [Suspect]
     Indication: HYPERTENSION
     Route: 048
  3. VALPROATE [Interacting]
     Indication: SCHIZOAFFECTIVE DISORDER
  4. FUROSEMIDE [Suspect]
     Indication: HYPERTENSION
  5. SIMVASTATIN [Suspect]
     Indication: HYPERLIPIDAEMIA
  6. INSULIN [Concomitant]
     Indication: DIABETES MELLITUS

REACTIONS (3)
  - Inhibitory drug interaction [Recovered/Resolved]
  - Respiratory alkalosis [Recovered/Resolved]
  - Pancreatitis [Recovered/Resolved]
